FAERS Safety Report 6338342-5 (Version None)
Quarter: 2009Q3

REPORT INFORMATION
  Report Type: 
  Country: None (occurrence: None)
  Receive Date: 20090902
  Receipt Date: 20090828
  Transmission Date: 20100115
  Serious: Yes (Hospitalization)
  Sender: FDA-Public Use
  Company Number: JP-AVENTIS-200912075JP

PATIENT
  Sex: Male

DRUGS (5)
  1. LANTUS [Suspect]
     Dosage: DOSE: 4 UNITS
     Route: 058
     Dates: start: 20080712, end: 20081208
  2. OPTICLIK (INSULIN INJECTION PEN) [Suspect]
  3. METFORMIN HYDROCHLORIDE [Concomitant]
     Dosage: DOSE: 250 MG
     Route: 048
     Dates: end: 20081208
  4. BASEN [Concomitant]
     Dosage: DOSE: 0.3 MG
     Route: 048
     Dates: end: 20081208
  5. OTHER UROLOGICALS, INCL ANTISPASMODICS [Concomitant]
     Dosage: DOSE: 2 MG
     Route: 048
     Dates: end: 20081208

REACTIONS (2)
  - DECREASED APPETITE [None]
  - PARKINSON'S DISEASE [None]
